FAERS Safety Report 15060651 (Version 1)
Quarter: 2018Q2

REPORT INFORMATION
  Report Type: Other
  Country: US (occurrence: US)
  Receive Date: 20180625
  Receipt Date: 20180625
  Transmission Date: 20180711
  Serious: Yes (Hospitalization)
  Sender: FDA-Public Use
  Company Number: US-MISSION PHARMACAL COMPANY-2049894

PATIENT
  Age: 30 Year
  Sex: Male

DRUGS (1)
  1. THIOLA [Suspect]
     Active Substance: TIOPRONIN
     Route: 048
     Dates: start: 20141004

REACTIONS (2)
  - Pain [Unknown]
  - Drug ineffective [Unknown]
